FAERS Safety Report 12966827 (Version 1)
Quarter: 2016Q4

REPORT INFORMATION
  Report Type: Spontaneous
  Country: US (occurrence: US)
  Receive Date: 20161121
  Receipt Date: 20161121
  Transmission Date: 20170207
  Serious: Yes (Hospitalization)
  Sender: FDA-Public Use
  Company Number: None

PATIENT
  Age: 52 Year
  Sex: Female
  Weight: 68.85 kg

DRUGS (5)
  1. PRILOSEC [Suspect]
     Active Substance: OMEPRAZOLE MAGNESIUM
     Indication: LARYNGEAL ULCERATION
     Route: 048
  2. DEXILANT [Suspect]
     Active Substance: DEXLANSOPRAZOLE
  3. PROBIOTIC [Concomitant]
     Active Substance: PROBIOTICS NOS
  4. FLONASE [Concomitant]
     Active Substance: FLUTICASONE PROPIONATE
  5. PROTONIX [Suspect]
     Active Substance: PANTOPRAZOLE SODIUM

REACTIONS (4)
  - Paradoxical drug reaction [None]
  - Gastrooesophageal reflux disease [None]
  - Hiatus hernia strangulated [None]
  - Flatulence [None]

NARRATIVE: CASE EVENT DATE: 20161118
